FAERS Safety Report 10888860 (Version 7)
Quarter: 2015Q2

REPORT INFORMATION
  Report Type: Spontaneous
  Country: US (occurrence: US)
  Receive Date: 20150305
  Receipt Date: 20150611
  Transmission Date: 20150821
  Serious: Yes (Hospitalization, Other)
  Sender: FDA-Public Use
  Company Number: US-009507513-1107USA03828

PATIENT
  Sex: Female
  Weight: 78.46 kg

DRUGS (17)
  1. VITAMINS (UNSPECIFIED) [Concomitant]
     Active Substance: VITAMINS
     Dosage: UNK
     Dates: start: 1970
  2. VITAMIN B (UNSPECIFIED) [Concomitant]
     Dosage: UNK
     Dates: start: 1970
  3. LIPITOR [Concomitant]
     Active Substance: ATORVASTATIN CALCIUM
     Dosage: 10-20 MG, HS
     Dates: start: 19970923
  4. FOSAMAX [Suspect]
     Active Substance: ALENDRONATE SODIUM
     Indication: OSTEOPOROSIS
  5. ASCORBIC ACID. [Concomitant]
     Active Substance: ASCORBIC ACID
     Dosage: UNK
     Dates: start: 1970
  6. ASTELIN (AZELASTINE HYDROCHLORIDE) [Concomitant]
     Active Substance: AZELASTINE HYDROCHLORIDE
     Dosage: 2 SPRAYS EACH NOSTRIL, BID
     Route: 045
     Dates: start: 19970911
  7. VITAMIN D [Concomitant]
     Active Substance: CHOLECALCIFEROL
     Dosage: UNK
     Dates: start: 1970
  8. VASOTEC [Concomitant]
     Active Substance: ENALAPRIL MALEATE
     Dosage: 20 MG, QD
     Dates: start: 1997
  9. REZULIN [Concomitant]
     Active Substance: TROGLITAZONE
     Dosage: 200 MG, UNK
     Dates: start: 19970925
  10. PREMARIN [Concomitant]
     Active Substance: ESTROGENS, CONJUGATED
     Dosage: .625 MG, QD
     Dates: start: 1997
  11. FOSAMAX [Suspect]
     Active Substance: ALENDRONATE SODIUM
     Indication: OSTEOPENIA
     Dosage: 70 MG, QW
     Route: 048
     Dates: start: 20070207, end: 20090904
  12. ALENDRONATE SODIUM. [Suspect]
     Active Substance: ALENDRONATE SODIUM
     Indication: BONE DENSITY DECREASED
     Dosage: 70 MG, QW
     Route: 048
     Dates: start: 20080818, end: 20100216
  13. CALCIUM (UNSPECIFIED) [Concomitant]
     Active Substance: CALCIUM
     Dosage: UNK
     Dates: start: 1970
  14. FOSAMAX [Suspect]
     Active Substance: ALENDRONATE SODIUM
     Indication: BONE DENSITY DECREASED
     Dosage: 10 MG, QAM
     Route: 048
     Dates: start: 19970923, end: 20061121
  15. ALENDRONATE SODIUM. [Suspect]
     Active Substance: ALENDRONATE SODIUM
     Indication: OSTEOPENIA
  16. FOLIC ACID. [Concomitant]
     Active Substance: FOLIC ACID
     Dosage: UNK
     Dates: start: 1970
  17. VITAMIN E [Concomitant]
     Active Substance: .ALPHA.-TOCOPHEROL
     Dosage: UNK
     Dates: start: 1970

REACTIONS (27)
  - Limb injury [Unknown]
  - Arthritis [Unknown]
  - Metabolic syndrome [Unknown]
  - Basal cell carcinoma [Unknown]
  - Type 2 diabetes mellitus [Unknown]
  - Bladder disorder [Unknown]
  - Femur fracture [Recovered/Resolved]
  - Rotator cuff syndrome [Unknown]
  - Precancerous skin lesion [Unknown]
  - Surgery [Unknown]
  - Normochromic normocytic anaemia [Unknown]
  - Femur fracture [Recovered/Resolved]
  - Inner ear disorder [Unknown]
  - Spinal osteoarthritis [Unknown]
  - Onychoclasis [Unknown]
  - Arthritis [Unknown]
  - Musculoskeletal pain [Unknown]
  - Muscle strain [Unknown]
  - Gastrooesophageal reflux disease [Unknown]
  - Osteoarthritis [Unknown]
  - Pain in extremity [Unknown]
  - Vertigo [Unknown]
  - Bone disorder [Unknown]
  - Cataract operation [Unknown]
  - Temperature intolerance [Unknown]
  - Hyperhidrosis [Unknown]
  - Hypertriglyceridaemia [Unknown]

NARRATIVE: CASE EVENT DATE: 19980910
